FAERS Safety Report 10473657 (Version 4)
Quarter: 2015Q2

REPORT INFORMATION
  Report Type: Spontaneous
  Country: US (occurrence: US)
  Receive Date: 20140924
  Receipt Date: 20150623
  Transmission Date: 20150821
  Serious: No
  Sender: FDA-Public Use
  Company Number: US-ELI_LILLY_AND_COMPANY-US201312008127

PATIENT
  Sex: Male

DRUGS (1)
  1. ZYPREXA [Suspect]
     Active Substance: OLANZAPINE
     Indication: PRODUCT USED FOR UNKNOWN INDICATION
     Dosage: 1 DF, UNKNOWN
     Route: 048

REACTIONS (6)
  - Anogenital warts [Not Recovered/Not Resolved]
  - Gastrooesophageal reflux disease [Unknown]
  - Rash [Unknown]
  - Testicular cyst [Not Recovered/Not Resolved]
  - Pruritus genital [Unknown]
  - Dyspepsia [Unknown]

NARRATIVE: CASE EVENT DATE: 2009
